FAERS Safety Report 6728802-7 (Version None)
Quarter: 2010Q2

REPORT INFORMATION
  Report Type: 
  Country: None (occurrence: None)
  Receive Date: 20100517
  Receipt Date: 20100308
  Transmission Date: 20101027
  Serious: No
  Sender: FDA-Public Use
  Company Number: US-ABBOTT-10P-163-0627761-00

PATIENT
  Sex: Female
  Weight: 64.468 kg

DRUGS (4)
  1. SIMCOR [Suspect]
     Indication: DYSLIPIDAEMIA
     Dosage: 500/20 MG AT BEDTIME
     Route: 048
     Dates: start: 20100210
  2. LEVOTHYROXINE SODIUM [Concomitant]
     Indication: DRUG USE FOR UNKNOWN INDICATION
     Route: 048
  3. ASPIRIN [Concomitant]
     Indication: DRUG USE FOR UNKNOWN INDICATION
     Route: 048
  4. CLARITIN [Concomitant]
     Indication: DRUG USE FOR UNKNOWN INDICATION
     Route: 048

REACTIONS (7)
  - BACK PAIN [None]
  - ERYTHEMA [None]
  - FEELING HOT [None]
  - FLUSHING [None]
  - HYPERSENSITIVITY [None]
  - PRURITUS [None]
  - SWELLING [None]
